FAERS Safety Report 10796177 (Version 2)
Quarter: 2015Q1

REPORT INFORMATION
  Report Type: Spontaneous
  Country: US (occurrence: US)
  Receive Date: 20150216
  Receipt Date: 20150331
  Transmission Date: 20150721
  Serious: Yes (Other)
  Sender: FDA-Public Use
  Company Number: US-JNJFOC-20150203944

PATIENT
  Age: 68 Year
  Sex: Female
  Weight: 68.04 kg

DRUGS (2)
  1. LUBRIDERM DAILY MOISTURIZER WITH SUNSCREEN SPF15 [Suspect]
     Active Substance: AVOBENZONE\OCTISALATE\OCTOCRYLENE\OXYBENZONE
     Indication: DRY SKIN
     Dosage: 2-3 PUMPS.
     Route: 061
     Dates: start: 201406, end: 201501
  2. VITAMINS [Concomitant]
     Active Substance: VITAMINS
     Route: 065

REACTIONS (3)
  - Erythema [Recovering/Resolving]
  - Swelling [Recovering/Resolving]
  - Expired product administered [Unknown]

NARRATIVE: CASE EVENT DATE: 201406
